FAERS Safety Report 7212124-4 (Version None)
Quarter: 2011Q1

REPORT INFORMATION
  Report Type: 
  Country: None (occurrence: None)
  Receive Date: 20110106
  Receipt Date: 20100728
  Transmission Date: 20110831
  Serious: Yes (Hospitalization)
  Sender: FDA-Public Use
  Company Number: US-BAYER-200928606NA

PATIENT
  Sex: Female
  Weight: 77.273 kg

DRUGS (6)
  1. HYDROCODONE [Concomitant]
     Route: 065
     Dates: start: 20080128, end: 20090115
  2. IBUPROFEN [Concomitant]
     Indication: PAIN
     Route: 048
     Dates: start: 20080828
  3. NORCO [Concomitant]
     Indication: PAIN
     Dosage: UNK
     Route: 048
  4. ROBAXIN [Concomitant]
     Indication: MUSCLE SPASMS
     Dosage: 750 MG, UNK
  5. YAZ [Suspect]
     Indication: LOCALISED INTRAABDOMINAL FLUID COLLECTION
     Route: 048
     Dates: start: 20071130, end: 20090610
  6. IBUPROFEN [Concomitant]
     Indication: LOCALISED INTRAABDOMINAL FLUID COLLECTION
     Route: 065
     Dates: start: 20080905

REACTIONS (8)
  - BILIARY COLIC [None]
  - ABDOMINAL PAIN UPPER [None]
  - CHOLECYSTITIS ACUTE [None]
  - VOMITING [None]
  - MURPHY'S SIGN POSITIVE [None]
  - CHOLELITHIASIS [None]
  - NAUSEA [None]
  - LOCALISED INTRAABDOMINAL FLUID COLLECTION [None]
